FAERS Safety Report 5159622-5 (Version None)
Quarter: 2006Q4

REPORT INFORMATION
  Report Type: 
  Country: None (occurrence: None)
  Receive Date: 20061129
  Receipt Date: 20060818
  Transmission Date: 20070319
  Serious: Yes (Death, Other)
  Sender: FDA-Public Use
  Company Number: AU-BRISTOL-MYERS SQUIBB COMPANY-13481437

PATIENT
  Age: 64 Year
  Sex: Female
  Weight: 85 kg

DRUGS (3)
  1. AVAPRO [Suspect]
  2. PAROXETINE HCL [Concomitant]
  3. ALCOHOL [Concomitant]

REACTIONS (1)
  - COMPLETED SUICIDE [None]
